FAERS Safety Report 9476099 (Version 1)
Quarter: 2013Q3

REPORT INFORMATION
  Report Type: Report from Study
  Country: BR (occurrence: BR)
  Receive Date: 20130826
  Receipt Date: 20130826
  Transmission Date: 20140515
  Serious: Yes (Hospitalization, Other)
  Sender: FDA-Public Use
  Company Number: PHHY2013BR091499

PATIENT
  Age: 64 Year
  Sex: Male

DRUGS (5)
  1. BASILIXIMAB [Suspect]
     Dosage: UNK UKN, UNK
  2. AZATHIOPRINE [Suspect]
     Indication: IMMUNOSUPPRESSION
     Dosage: 100 MG/DAY
  3. TACROLIMUS [Suspect]
     Indication: IMMUNOSUPPRESSION
     Dosage: 0.15 MG/KG/DAY
  4. PREDNISONE [Suspect]
     Indication: IMMUNOSUPPRESSION
     Dosage: UNK UKN, UNK
  5. SIROLIMUS [Concomitant]
     Dosage: UNK UKN, UNK

REACTIONS (8)
  - Complications of transplanted kidney [Unknown]
  - Proteinuria [Unknown]
  - Vascular graft complication [Unknown]
  - Renal tubular necrosis [Unknown]
  - Renal impairment [Unknown]
  - Blood creatinine increased [Unknown]
  - Cytomegalovirus infection [Unknown]
  - Gastroenteritis [Unknown]
